FAERS Safety Report 7603193-8 (Version None)
Quarter: 2011Q3

REPORT INFORMATION
  Report Type: 
  Country: None (occurrence: None)
  Receive Date: 20110712
  Receipt Date: 20110629
  Transmission Date: 20111222
  Serious: Yes (Life-Threatening, Hospitalization)
  Sender: FDA-Public Use
  Company Number: GB-TEVA-285441ISR

PATIENT
  Sex: Female
  Weight: 25 kg

DRUGS (7)
  1. METHOTREXATE [Suspect]
     Dosage: 8.5 MILLIGRAM;
     Route: 040
     Dates: start: 20110511
  2. BUSULFAN [Concomitant]
     Indication: PROPHYLAXIS AGAINST GRAFT VERSUS HOST DISEASE
     Route: 048
     Dates: start: 20110425, end: 20110428
  3. METHOTREXATE [Suspect]
     Indication: PROPHYLAXIS AGAINST GRAFT VERSUS HOST DISEASE
     Dosage: 8.5 MILLIGRAM;
     Route: 040
     Dates: start: 20110508, end: 20110508
  4. CYCLOSPORINE [Concomitant]
     Indication: PROPHYLAXIS AGAINST GRAFT VERSUS HOST DISEASE
  5. THIOTEPA [Concomitant]
  6. ALEMTUZUMAB [Concomitant]
  7. CYCLOPHOSPHAMIDE BAXTER [Concomitant]
     Indication: PROPHYLAXIS AGAINST GRAFT VERSUS HOST DISEASE
     Dosage: 1120 MILLIGRAM;
     Route: 041
     Dates: start: 20110429, end: 20110502

REACTIONS (7)
  - HAEMODIALYSIS [None]
  - CYTOMEGALOVIRUS INFECTION [None]
  - VENOOCCLUSIVE DISEASE [None]
  - METHYLOBACTERIUM INFECTION [None]
  - MUCOSAL INFLAMMATION [None]
  - PULMONARY HAEMORRHAGE [None]
  - BACTERIAL SEPSIS [None]
